FAERS Safety Report 22146399 (Version 1)
Quarter: 2023Q1

REPORT INFORMATION
  Report Type: Spontaneous
  Country: US (occurrence: US)
  Receive Date: 20230328
  Receipt Date: 20230328
  Transmission Date: 20230418
  Serious: No
  Sender: FDA-Public Use
  Company Number: US-IMPEL PHARMACEUTICALS INC-2023-SPO-TR-0212

PATIENT

DRUGS (3)
  1. TRUDHESA [Suspect]
     Active Substance: DIHYDROERGOTAMINE MESYLATE
     Indication: Migraine
     Dosage: 1.45 MILLIGRAM
     Route: 045
  2. VITAMINS NOS [Concomitant]
     Active Substance: VITAMINS
     Indication: Product used for unknown indication
  3. MINERALS [Concomitant]
     Active Substance: MINERALS
     Indication: Product used for unknown indication

REACTIONS (4)
  - Migraine [Unknown]
  - Nasal discomfort [Unknown]
  - Paranasal sinus discomfort [Unknown]
  - Product after taste [Unknown]
